FAERS Safety Report 4925170-8 (Version None)
Quarter: 2006Q1

REPORT INFORMATION
  Report Type: 
  Country: None (occurrence: None)
  Receive Date: 20060228
  Receipt Date: 20051228
  Transmission Date: 20060701
  Serious: No
  Sender: FDA-Public Use
  Company Number: US-GLAXOSMITHKLINE-A0587057A

PATIENT
  Age: 83 Year
  Sex: Male

DRUGS (12)
  1. AVODART [Suspect]
     Indication: BENIGN PROSTATIC HYPERPLASIA
     Dosage: .5MG PER DAY
     Route: 048
     Dates: start: 20051207
  2. UROXATRAL [Concomitant]
  3. SPIRONOLACTONE [Concomitant]
  4. LANOXIN [Concomitant]
  5. ATACAND [Concomitant]
  6. SYNTHROID [Concomitant]
  7. MULTI-VITAMIN [Concomitant]
  8. ASPIRIN [Concomitant]
  9. CELEXA [Concomitant]
  10. TOPROL-XL [Concomitant]
  11. ACTOS [Concomitant]
  12. AMARYL [Concomitant]

REACTIONS (1)
  - DRY MOUTH [None]
